FAERS Safety Report 23799449 (Version 1)
Quarter: 2024Q2

REPORT INFORMATION
  Report Type: Spontaneous
  Country: US (occurrence: None)
  Receive Date: 20240428
  Receipt Date: 20240428
  Transmission Date: 20240716
  Serious: No
  Sender: FDA-Public Use
  Company Number: None

PATIENT
  Sex: Female
  Weight: 60.75 kg

DRUGS (2)
  1. BIJUVA [Suspect]
     Active Substance: ESTRADIOL\PROGESTERONE
     Indication: Hormone replacement therapy
     Dates: start: 20240405, end: 20240410
  2. Fish oils [Concomitant]

REACTIONS (15)
  - Tendonitis [None]
  - Dizziness [None]
  - Influenza like illness [None]
  - Nausea [None]
  - Diarrhoea [None]
  - Night sweats [None]
  - Depressed mood [None]
  - Irritability [None]
  - Brain fog [None]
  - Cough [None]
  - Apathy [None]
  - Abdominal distension [None]
  - Product complaint [None]
  - General symptom [None]
  - Condition aggravated [None]
